FAERS Safety Report 5833948-1 (Version None)
Quarter: 2008Q3

REPORT INFORMATION
  Report Type: 
  Country: None (occurrence: None)
  Receive Date: 20080731
  Receipt Date: 20080716
  Transmission Date: 20090109
  Serious: Yes (Life-Threatening, Hospitalization, Disabling)
  Sender: FDA-Public Use
  Company Number: 2008AL008648

PATIENT
  Age: 81 Year
  Sex: Female
  Weight: 58.0604 kg

DRUGS (1)
  1. DIGOXIN [Suspect]
     Indication: ARRHYTHMIA
     Dosage: 0.125MG DAILY PO
     Route: 048
     Dates: start: 20070401, end: 20080501

REACTIONS (3)
  - CARDIAC ARREST [None]
  - HEART RATE IRREGULAR [None]
  - MALAISE [None]
